FAERS Safety Report 14075113 (Version 1)
Quarter: 2017Q4

REPORT INFORMATION
  Report Type: Spontaneous
  Country: NL (occurrence: NL)
  Receive Date: 20171011
  Receipt Date: 20171011
  Transmission Date: 20180321
  Serious: Yes (Hospitalization)
  Sender: FDA-Public Use
  Company Number: NL-SA-2017SA187274

PATIENT
  Age: 64 Year
  Sex: Male
  Weight: 78 kg

DRUGS (2)
  1. FEXOFENADINE [Suspect]
     Active Substance: FEXOFENADINE\FEXOFENADINE HYDROCHLORIDE
     Indication: ANGIOEDEMA
     Route: 048
     Dates: start: 20141109, end: 20161116
  2. DUOTRAV [Concomitant]
     Active Substance: TIMOLOL MALEATE\TRAVOPROST
     Route: 047

REACTIONS (2)
  - Arrhythmia [Recovered/Resolved]
  - Palpitations [Recovered/Resolved]
